FAERS Safety Report 11793698 (Version 2)
Quarter: 2015Q4

REPORT INFORMATION
  Report Type: Spontaneous
  Country: NL (occurrence: NL)
  Receive Date: 20151202
  Receipt Date: 20151222
  Transmission Date: 20160305
  Serious: Yes (Death)
  Sender: FDA-Public Use
  Company Number: NL-ACTELION-A-CH2015-128019

PATIENT
  Age: 45 Year
  Sex: Female
  Weight: 58 kg

DRUGS (9)
  1. OCULENTUM SIMPLEX [Concomitant]
  2. TRACLEER [Suspect]
     Active Substance: BOSENTAN
     Indication: PULMONARY ARTERIAL HYPERTENSION
     Dosage: 125 MG, BID
     Route: 048
     Dates: start: 20060618, end: 20151124
  3. SILDENAFIL. [Concomitant]
     Active Substance: SILDENAFIL
     Indication: PULMONARY ARTERIAL HYPERTENSION
     Dosage: 40 MG, TID
     Route: 048
  4. ACENOCOUMAROL [Concomitant]
     Active Substance: ACENOCOUMAROL
  5. ARTELAC [Concomitant]
     Active Substance: HYPROMELLOSES
  6. THYRAX [Concomitant]
     Active Substance: LEVOTHYROXINE
  7. BUMETANIDE. [Concomitant]
     Active Substance: BUMETANIDE
  8. SPIRONOLACTON [Concomitant]
     Active Substance: SPIRONOLACTONE
  9. HYDROCHLOROTHIAZIDE. [Concomitant]
     Active Substance: HYDROCHLOROTHIAZIDE

REACTIONS (3)
  - Cardiac failure [Fatal]
  - Right ventricular failure [Fatal]
  - Sudden cardiac death [Fatal]

NARRATIVE: CASE EVENT DATE: 20151124
